FAERS Safety Report 4917393-9 (Version None)
Quarter: 2006Q1

REPORT INFORMATION
  Report Type: 
  Country: None (occurrence: None)
  Receive Date: 20060221
  Receipt Date: 20060113
  Transmission Date: 20060701
  Serious: Yes (Hospitalization)
  Sender: FDA-Public Use
  Company Number: FR-GLAXOSMITHKLINE-B0406874A

PATIENT
  Age: 80 Year
  Sex: Male
  Weight: 52 kg

DRUGS (4)
  1. AUGMENTIN '125' [Suspect]
     Indication: HAEMORRHAGE
     Dosage: 1G TWICE PER DAY
     Route: 048
     Dates: start: 20051112, end: 20051121
  2. ANDROCUR [Suspect]
     Indication: PROSTATE CANCER
     Dosage: 50MG TWICE PER DAY
     Route: 048
     Dates: start: 20040501, end: 20051130
  3. TEGELINE [Suspect]
     Dosage: 1GK SEE DOSAGE TEXT
     Route: 042
     Dates: start: 20051111, end: 20051113
  4. CORTANCYL [Concomitant]
     Indication: THROMBOCYTOPENIC PURPURA
     Route: 065

REACTIONS (10)
  - ALANINE AMINOTRANSFERASE INCREASED [None]
  - ASPARTATE AMINOTRANSFERASE INCREASED [None]
  - BLOOD ALKALINE PHOSPHATASE INCREASED [None]
  - CHOLESTASIS [None]
  - FALL [None]
  - GAMMA-GLUTAMYLTRANSFERASE INCREASED [None]
  - HAEMORRHAGE [None]
  - MALAISE [None]
  - PLATELET COUNT DECREASED [None]
  - SINUS DISORDER [None]
